FAERS Safety Report 5419206-8 (Version None)
Quarter: 2007Q3

REPORT INFORMATION
  Report Type: 
  Country: None (occurrence: None)
  Receive Date: 20070820
  Receipt Date: 20070815
  Transmission Date: 20080115
  Serious: Yes (Life-Threatening, Hospitalization)
  Sender: FDA-Public Use
  Company Number: US-BOEHRINGER INGELHEIM PHARMACEUTICALS, INC.-2007-BP-17987BP

PATIENT
  Age: 72 Year
  Sex: Male

DRUGS (14)
  1. MOBIC [Suspect]
     Indication: OSTEOARTHRITIS
     Route: 048
     Dates: start: 20070417
  2. MOBIC [Suspect]
     Route: 048
     Dates: start: 20070410, end: 20070416
  3. GLUCOSAMINE AND CHONDROITIN [Concomitant]
  4. ALKA SELTZER [Concomitant]
  5. TUMS [Concomitant]
  6. CLARITIN [Concomitant]
  7. BISACODYL [Concomitant]
  8. TYLENOL [Concomitant]
  9. IMODIUM [Concomitant]
  10. FLOMAX [Concomitant]
  11. LOPRESSOR [Concomitant]
     Dates: end: 20070101
  12. ZOCOR [Concomitant]
  13. OMEGA 3 [Concomitant]
  14. NITROGLYCERIN [Concomitant]
     Indication: CHEST PAIN

REACTIONS (13)
  - AXILLARY PAIN [None]
  - BACK PAIN [None]
  - CHEST PAIN [None]
  - CORONARY ARTERY DISEASE [None]
  - DIZZINESS [None]
  - DIZZINESS EXERTIONAL [None]
  - ELECTROCARDIOGRAM ST SEGMENT DEPRESSION [None]
  - HYPERHIDROSIS [None]
  - HYPOAESTHESIA [None]
  - PAIN IN EXTREMITY [None]
  - PROCEDURAL DIZZINESS [None]
  - RADICULITIS CERVICAL [None]
  - SINUS ARRHYTHMIA [None]
